FAERS Safety Report 16400790 (Version 1)
Quarter: 2019Q2

REPORT INFORMATION
  Report Type: Spontaneous
  Country: US (occurrence: US)
  Receive Date: 20190606
  Receipt Date: 20190606
  Transmission Date: 20190711
  Serious: No
  Sender: FDA-Public Use
  Company Number: US-TEVA-2019-US-1049117

PATIENT
  Sex: Female

DRUGS (1)
  1. CLONIDINE PATCH ACTAVIS [Suspect]
     Active Substance: CLONIDINE
     Indication: BLOOD PRESSURE INCREASED
     Route: 062

REACTIONS (4)
  - Hypertension [Unknown]
  - Drug ineffective [Unknown]
  - Application site erythema [Unknown]
  - Nervousness [Unknown]
